FAERS Safety Report 5092666-0 (Version None)
Quarter: 2006Q3

REPORT INFORMATION
  Report Type: 
  Country: None (occurrence: None)
  Receive Date: 20060830
  Receipt Date: 20060327
  Transmission Date: 20061208
  Serious: No
  Sender: FDA-Public Use
  Company Number: US-AVENTIS-200612953US

PATIENT
  Sex: Male

DRUGS (13)
  1. NASACORT AQ [Suspect]
     Indication: SINUSITIS
     Dosage: DOSE: 2 SPRAYS/NOSTRIL
     Route: 045
     Dates: start: 20060101
  2. NASACORT AQ [Suspect]
     Indication: RHINITIS
     Dosage: DOSE: 2 SPRAYS/NOSTRIL
     Route: 045
     Dates: start: 20060101
  3. NASACORT AQ [Suspect]
     Indication: BRONCHIAL HYPERREACTIVITY
     Dosage: DOSE: 2 SPRAYS/NOSTRIL
     Route: 045
     Dates: start: 20060101
  4. ALLEGRA [Suspect]
     Indication: SINUSITIS
     Dosage: DOSE: UNK
  5. ALLEGRA [Suspect]
     Indication: RHINITIS
     Dosage: DOSE: UNK
  6. ALLEGRA [Suspect]
     Indication: BRONCHIAL HYPERREACTIVITY
     Dosage: DOSE: UNK
  7. ZICAM [Suspect]
     Dosage: DOSE: UNKNOWN
  8. ASMANEX                                 /CAN/ [Suspect]
     Dosage: DOSE: UNK
  9. NEXIUM [Concomitant]
     Dosage: DOSE: UNKNOWN
  10. LIPITOR [Concomitant]
     Dosage: DOSE: UNKNOWN
  11. DITROPAN XL [Concomitant]
     Dosage: DOSE: UNKNOWN
  12. DOXAZOSIN MESYLATE [Concomitant]
     Dosage: DOSE: UNKNOWN
  13. ASMANEX                                 /CAN/ [Concomitant]
     Dosage: DOSE: UNKNOWN

REACTIONS (3)
  - BRONCHITIS [None]
  - LOSS OF CONSCIOUSNESS [None]
  - PYREXIA [None]
